FAERS Safety Report 4744538-6 (Version None)
Quarter: 2005Q3

REPORT INFORMATION
  Report Type: 
  Country: None (occurrence: None)
  Receive Date: 20050809
  Receipt Date: 20041221
  Transmission Date: 20060218
  Serious: Yes (Other)
  Sender: FDA-Public Use
  Company Number: 2004-123732-NL

PATIENT
  Age: 46 Year
  Sex: Female

DRUGS (4)
  1. REMERON [Suspect]
     Dates: start: 20040823
  2. TRACLEER [Suspect]
     Dosage: 62.5 MG DAILY
     Dates: start: 20021201, end: 20030101
  3. TRACLEER [Suspect]
     Indication: PULMONARY HYPERTENSION
     Dosage: 125 MG DAILY ORAL
     Route: 048
     Dates: start: 20030101, end: 20040901
  4. TRACLEER [Suspect]
     Indication: PULMONARY HYPERTENSION
     Dosage: ORAL
     Route: 048
     Dates: start: 20041101

REACTIONS (4)
  - ANOREXIA [None]
  - LIVER FUNCTION TEST ABNORMAL [None]
  - MYALGIA [None]
  - WEIGHT DECREASED [None]
